FAERS Safety Report 6753574-X (Version None)
Quarter: 2010Q2

REPORT INFORMATION
  Report Type: 
  Country: None (occurrence: None)
  Receive Date: 20100603
  Receipt Date: 20100526
  Transmission Date: 20101027
  Serious: Yes (Other)
  Sender: FDA-Public Use
  Company Number: US-SANOFI-AVENTIS-2010SA030759

PATIENT
  Age: 84 Year
  Sex: Male

DRUGS (1)
  1. LANTUS [Suspect]
     Dosage: DOSE:6 UNIT(S)
     Route: 058

REACTIONS (3)
  - BLOOD GLUCOSE DECREASED [None]
  - CEREBRAL HAEMORRHAGE [None]
  - EXPIRED DRUG ADMINISTERED [None]
